FAERS Safety Report 18102010 (Version 1)
Quarter: 2020Q3

REPORT INFORMATION
  Report Type: Spontaneous
  Country: CN (occurrence: CN)
  Receive Date: 20200803
  Receipt Date: 20200803
  Transmission Date: 20201103
  Serious: Yes (Hospitalization)
  Sender: FDA-Public Use
  Company Number: CN-ROCHE-2651460

PATIENT
  Age: 48 Year
  Sex: Female
  Weight: 45 kg

DRUGS (8)
  1. PERJETA [Suspect]
     Active Substance: PERTUZUMAB
     Indication: BREAST CANCER
     Route: 041
     Dates: start: 20200701, end: 20200701
  2. DOCETAXEL. [Suspect]
     Active Substance: DOCETAXEL
     Indication: BREAST CANCER
     Route: 041
     Dates: start: 20200701, end: 20200701
  3. CARBOPLATIN. [Suspect]
     Active Substance: CARBOPLATIN
     Indication: BREAST CANCER
     Route: 041
     Dates: start: 20200701, end: 20200701
  4. HERCEPTIN [Suspect]
     Active Substance: TRASTUZUMAB
     Indication: BREAST CANCER
     Route: 041
     Dates: start: 20200701, end: 20200701
  5. SODIUM CHLORIDE. [Concomitant]
     Active Substance: SODIUM CHLORIDE
     Dosage: LOT NO. 2020031141, SOLVENT FOR PERTUZUMAB
     Route: 041
     Dates: start: 20200701, end: 20200701
  6. SODIUM CHLORIDE. [Concomitant]
     Active Substance: SODIUM CHLORIDE
     Dosage: LOT NO. 2020030143, SOLVENT FOR CARBOPLATIN INJECTION
     Route: 041
     Dates: start: 20200701, end: 20200701
  7. SODIUM CHLORIDE. [Concomitant]
     Active Substance: SODIUM CHLORIDE
     Indication: BREAST CANCER
     Dosage: LOT NO. 2020031141, SOLVENT FOR TRASTUZUMAB
     Route: 041
     Dates: start: 20200701, end: 20200701
  8. SODIUM CHLORIDE. [Concomitant]
     Active Substance: SODIUM CHLORIDE
     Dosage: LOT NO. 2020031141, SOLVENT FOR DOCETAXEL INJECTION
     Route: 041
     Dates: start: 20200701, end: 20200701

REACTIONS (1)
  - Myelosuppression [Recovering/Resolving]

NARRATIVE: CASE EVENT DATE: 20200706
